FAERS Safety Report 5382936-0 (Version None)
Quarter: 2007Q2

REPORT INFORMATION
  Report Type: 
  Country: None (occurrence: None)
  Receive Date: 20070629
  Receipt Date: 20070420
  Transmission Date: 20071010
  Serious: Yes (Hospitalization, Other)
  Sender: FDA-Public Use
  Company Number: US200704002145

PATIENT
  Sex: Male

DRUGS (2)
  1. HUMALOG [Suspect]
     Indication: DIABETES MELLITUS
     Dates: start: 20060101
  2. HUMALOG PEN (HUMALOG PEN) [Concomitant]

REACTIONS (3)
  - ANAEMIA [None]
  - BLOOD POTASSIUM INCREASED [None]
  - RENAL FAILURE [None]
